FAERS Safety Report 8964968 (Version 1)
Quarter: 2012Q4

REPORT INFORMATION
  Report Type: 
  Country: GB (occurrence: GB)
  Receive Date: 20121214
  Receipt Date: 20121214
  Transmission Date: 20130627
  Serious: Yes (Other)
  Sender: FDA-Public Use
  Company Number: GB-ROCHE-1168774

PATIENT
  Age: 44 Year
  Sex: Male
  Weight: 77.11 kg

DRUGS (4)
  1. NAPROXEN [Suspect]
     Indication: BACK DISORDER
     Route: 048
     Dates: start: 201207, end: 201207
  2. CO-CODAMOL [Concomitant]
  3. IBUPROFEN [Concomitant]
  4. PARACETAMOL [Concomitant]

REACTIONS (4)
  - Blister [Recovered/Resolved]
  - Mouth ulceration [Recovered/Resolved with Sequelae]
  - Oral mucosal blistering [Recovered/Resolved]
  - Oedema mouth [Not Recovered/Not Resolved]
